FAERS Safety Report 25743759 (Version 1)
Quarter: 2025Q3

REPORT INFORMATION
  Report Type: Spontaneous
  Country: US (occurrence: US)
  Receive Date: 20250831
  Receipt Date: 20250831
  Transmission Date: 20251021
  Serious: No
  Sender: ELI LILLY AND COMPANY
  Company Number: US-ELI_LILLY_AND_COMPANY-US202508015480

PATIENT
  Age: 62 Year
  Sex: Female

DRUGS (2)
  1. ZEPBOUND [Suspect]
     Active Substance: TIRZEPATIDE
     Indication: Weight control
     Route: 065
  2. ZEPBOUND [Suspect]
     Active Substance: TIRZEPATIDE
     Route: 065
     Dates: start: 20250810

REACTIONS (11)
  - Extra dose administered [Unknown]
  - Back pain [Unknown]
  - Neck pain [Unknown]
  - Pain in extremity [Unknown]
  - Tenderness [Unknown]
  - Cough [Unknown]
  - Palpitations [Unknown]
  - Weight decreased [Unknown]
  - Heart rate increased [Unknown]
  - Abdominal tenderness [Unknown]
  - Vomiting [Unknown]

NARRATIVE: CASE EVENT DATE: 20250810
